FAERS Safety Report 23130317 (Version 1)
Quarter: 2023Q4

REPORT INFORMATION
  Report Type: Spontaneous
  Country: US (occurrence: None)
  Receive Date: 20231031
  Receipt Date: 20231031
  Transmission Date: 20240109
  Serious: Yes (Hospitalization)
  Sender: FDA-Public Use
  Company Number: None

PATIENT
  Sex: Male

DRUGS (14)
  1. TACROLIMUS [Suspect]
     Active Substance: TACROLIMUS
     Indication: Renal transplant
     Dosage: FREQUENCY : EVERY 12 HOURS;?TAKE 1 CAPSULE (1 MG) BY MOUTH EVERY 12 HOURS. TOTAL DOSE 1.5 MG EVERY M
     Route: 048
     Dates: start: 20180912
  2. TACROLIMUS [Suspect]
     Active Substance: TACROLIMUS
     Dosage: FREQUENCY : EVERY 12 HOURS;?
     Route: 048
  3. TACROLIMUS [Suspect]
     Active Substance: TACROLIMUS
     Indication: Renal transplant
     Dosage: FREQUENCY : AS DIRECTED;?TAKE 1 CAPSULE (1 MG) BY MOUTH EVERY 12 HOURS. TOTAL DOSE 1.5 MG EVERY MORN
     Route: 048
     Dates: start: 20180912
  4. AMOXICILLIN [Concomitant]
  5. ATENOLOL [Concomitant]
  6. CELLCEPT [Concomitant]
     Active Substance: MYCOPHENOLATE MOFETIL
  7. LIPITOR [Concomitant]
     Active Substance: ATORVASTATIN CALCIUM
  8. LISINOPRIL [Concomitant]
  9. MULTIVITAL [Concomitant]
  10. MYCOPHENOLATE [Concomitant]
  11. NORVASC [Concomitant]
     Active Substance: AMLODIPINE BESYLATE
  12. PREDNISONE [Concomitant]
  13. RANITIDINE [Concomitant]
  14. ZANTAC [Concomitant]
     Active Substance: RANITIDINE HYDROCHLORIDE

REACTIONS (1)
  - Dyspnoea [None]
